FAERS Safety Report 9792619 (Version 1)
Quarter: 2014Q1

REPORT INFORMATION
  Report Type: Spontaneous
  Country: US (occurrence: US)
  Receive Date: 20140102
  Receipt Date: 20140102
  Transmission Date: 20141002
  Serious: No
  Sender: FDA-Public Use
  Company Number: US-SA-2013SA107233

PATIENT
  Sex: Female

DRUGS (4)
  1. AUBAGIO [Suspect]
     Indication: MULTIPLE SCLEROSIS
     Route: 048
     Dates: start: 201310
  2. VITAMIN D3 [Concomitant]
  3. VITAMIN C [Concomitant]
  4. CRYSELLE [Concomitant]

REACTIONS (2)
  - Hot flush [Recovering/Resolving]
  - Cough [Unknown]
